FAERS Safety Report 8897466 (Version 1)
Quarter: 2012Q4

REPORT INFORMATION
  Report Type: 
  Country: US (occurrence: US)
  Receive Date: 20121108
  Receipt Date: 20121108
  Transmission Date: 20130627
  Serious: No
  Sender: FDA-Public Use
  Company Number: US-AMGEN-USASP2012027280

PATIENT
  Age: 46 Year
  Sex: Female
  Weight: 68.03 kg

DRUGS (9)
  1. ENBREL [Suspect]
     Indication: PRODUCT USED FOR UNKNOWN INDICATION
     Dosage: 50 mg, qwk
     Route: 058
  2. TOPROL [Concomitant]
     Dosage: 100 mg, UNK
  3. CELEBREX [Concomitant]
     Dosage: 100 mg, UNK
  4. VITAMIN B12                        /00056201/ [Concomitant]
  5. VITAMIN D /00107901/ [Concomitant]
     Dosage: 1000 IU, UNK
  6. CALCIUM W/VITAMIN D                /00188401/ [Concomitant]
  7. IMITREX                            /01044801/ [Concomitant]
     Dosage: 100 mg, UNK
  8. MAGNESIUM [Concomitant]
     Dosage: 300 mg, UNK
  9. COQ-10 [Concomitant]
     Dosage: 100 mg, UNK

REACTIONS (2)
  - Injection site erythema [Unknown]
  - Injection site swelling [Unknown]
